FAERS Safety Report 8261165-7 (Version None)
Quarter: 2012Q2

REPORT INFORMATION
  Report Type: 
  Country: None (occurrence: None)
  Receive Date: 20120405
  Receipt Date: 20120326
  Transmission Date: 20120825
  Serious: Yes (Disabling, Other)
  Sender: FDA-Public Use
  Company Number: MX-SANOFI-AVENTIS-2012SA021026

PATIENT
  Age: 50 Year
  Sex: Male
  Weight: 81 kg

DRUGS (2)
  1. ENALAPRIL [Concomitant]
     Route: 048
  2. LANTUS [Suspect]
     Indication: TYPE 2 DIABETES MELLITUS
     Dosage: DOSE: 40 IU IN THE MORNING AND 20 IU AT NIGHT
     Route: 058
     Dates: start: 20080101

REACTIONS (9)
  - HYPERGLYCAEMIA [None]
  - DRY SKIN [None]
  - PRURITUS [None]
  - RENAL FAILURE [None]
  - FOOT FRACTURE [None]
  - PAIN IN EXTREMITY [None]
  - OEDEMA PERIPHERAL [None]
  - DRUG ADMINISTRATION ERROR [None]
  - INFLAMMATION [None]
